FAERS Safety Report 10861403 (Version 2)
Quarter: 2015Q1

REPORT INFORMATION
  Report Type: Spontaneous
  Country: PK (occurrence: PK)
  Receive Date: 20150224
  Receipt Date: 20150306
  Transmission Date: 20150721
  Serious: Yes (Death, Other)
  Sender: FDA-Public Use
  Company Number: PK-SA-2015SA020248

PATIENT
  Age: 1 Year
  Sex: Male
  Weight: 10 kg

DRUGS (1)
  1. CEREZYME [Suspect]
     Active Substance: IMIGLUCERASE
     Indication: GAUCHER^S DISEASE
     Route: 042
     Dates: start: 20140528, end: 201502

REACTIONS (5)
  - Lower respiratory tract infection [Unknown]
  - Aspiration [Unknown]
  - Vomiting [Unknown]
  - Pneumonia [Fatal]
  - Haemoptysis [Unknown]

NARRATIVE: CASE EVENT DATE: 20150210
